FAERS Safety Report 21027267 (Version 3)
Quarter: 2022Q3

REPORT INFORMATION
  Report Type: Report from Study
  Country: US (occurrence: US)
  Receive Date: 20220630
  Receipt Date: 20220906
  Transmission Date: 20221027
  Serious: Yes (Hospitalization)
  Sender: FDA-Public Use
  Company Number: US-BAXTER-2022BAX013203

PATIENT
  Age: 5 Year
  Sex: Female
  Weight: 13.6 kg

DRUGS (20)
  1. CYCLOPHOSPHAMIDE [Suspect]
     Active Substance: CYCLOPHOSPHAMIDE
     Indication: Recurrent cancer
     Dosage: 152.4 MG, D1-D3 OF 28 DAY CYCLE (152.4  MG)
     Route: 042
     Dates: start: 20220202, end: 20220311
  2. CYCLOPHOSPHAMIDE [Suspect]
     Active Substance: CYCLOPHOSPHAMIDE
     Indication: Refractory cancer
     Dosage: 147.6 MG, D1-D3 OF 28 DAY CYCLE (147.6 MG)
     Route: 042
     Dates: start: 20220425
  3. SODIUM CHLORIDE [Suspect]
     Active Substance: SODIUM CHLORIDE
     Indication: Fluid replacement
     Dosage: 0.9 %, PRN
     Route: 042
     Dates: start: 20220202
  4. VENETOCLAX [Suspect]
     Active Substance: VENETOCLAX
     Indication: Refractory cancer
     Dosage: 120 MG, NASOGASTRIC, 1X DAILY, D1-10 OF EACH 28 DAY CYCLE
     Route: 050
     Dates: start: 20220131, end: 20220131
  5. VENETOCLAX [Suspect]
     Active Substance: VENETOCLAX
     Indication: Recurrent cancer
     Dosage: 250 MG, NASOGASTRIC, 1X DAILY, D1-10 OF EACH 28 DAY CYCLE
     Route: 050
     Dates: start: 20220201
  6. TOPOTECAN HYDROCHLORIDE [Suspect]
     Active Substance: TOPOTECAN HYDROCHLORIDE
     Indication: Refractory cancer
     Dosage: 0.46 MG, (37 DAYS) D1-D3 OF 28 DAY CYCLE
     Route: 042
     Dates: start: 20220202, end: 20220311
  7. TOPOTECAN HYDROCHLORIDE [Suspect]
     Active Substance: TOPOTECAN HYDROCHLORIDE
     Indication: Recurrent cancer
     Dosage: 0.45 MG, D1-D3 OF 28 DAY CYCLE
     Route: 042
     Dates: start: 20220425
  8. LEVOTHYROXINE [Concomitant]
     Active Substance: LEVOTHYROXINE
     Indication: Hypothyroidism
     Dosage: 88 UG, QD
     Route: 048
     Dates: start: 20221106
  9. HYDROCORTISONE [Concomitant]
     Active Substance: HYDROCORTISONE
     Indication: Optic nerve disorder
     Dosage: 15 MG, 1 AS REQUIRED
     Route: 042
     Dates: start: 20181115
  10. ZOFRAN [Concomitant]
     Active Substance: ONDANSETRON HYDROCHLORIDE
     Indication: Prophylaxis of nausea and vomiting
     Dosage: 2 MG, 1 AS REQUIRED
     Route: 042
     Dates: start: 20220204
  11. CHOLECALCIFEROL [Concomitant]
     Active Substance: CHOLECALCIFEROL
     Indication: Supplementation therapy
     Dosage: 1 IN 1 D
     Route: 048
     Dates: start: 20220217
  12. SULFAMETHOXAZOLE AND TRIMETHOPRIM [Concomitant]
     Active Substance: SULFAMETHOXAZOLE\TRIMETHOPRIM
     Indication: Infection prophylaxis
     Dosage: OTHER, SPECIFY (BID SAT/SUN) (40 MG)
     Route: 048
     Dates: start: 20210913
  13. HEPARIN SODIUM [Concomitant]
     Active Substance: HEPARIN SODIUM
     Indication: Catheter management
     Dosage: 10 UNITS, AS REQUIRED
     Route: 042
     Dates: start: 20220112
  14. LOPERAMIDE HYDROCHLORIDE [Concomitant]
     Active Substance: LOPERAMIDE HYDROCHLORIDE
     Indication: Diarrhoea
     Dosage: 1 MG, AS REQUIRED
     Route: 048
     Dates: start: 20220207
  15. FILGRASTIM [Concomitant]
     Active Substance: FILGRASTIM
     Indication: Prophylaxis
     Dosage: 69 MCG, 1 IN 1 DAY
     Route: 042
     Dates: start: 20220604, end: 20220615
  16. FILGRASTIM [Concomitant]
     Active Substance: FILGRASTIM
     Indication: Chemotherapy
  17. ZOFRAN [Concomitant]
     Active Substance: ONDANSETRON HYDROCHLORIDE
     Indication: Prophylaxis of nausea and vomiting
     Dosage: 2 MG, AS REQUIRED
     Route: 042
     Dates: start: 20220308
  18. ZOFRAN [Concomitant]
     Active Substance: ONDANSETRON HYDROCHLORIDE
     Indication: Chemotherapy
  19. OXYCODONE [Concomitant]
     Active Substance: OXYCODONE
     Indication: Pain
     Dosage: Q6H PRN (1.5 MG)
     Route: 048
     Dates: start: 20220112
  20. NPLATE [Concomitant]
     Active Substance: ROMIPLOSTIM
     Indication: Platelet count decreased
     Dosage: Q7 DAYS WHEN PLATELETS LOW (40 MCG)
     Route: 058
     Dates: start: 20220228

REACTIONS (3)
  - Epistaxis [Recovered/Resolved]
  - Platelet count decreased [Not Recovered/Not Resolved]
  - Anaemia [Not Recovered/Not Resolved]

NARRATIVE: CASE EVENT DATE: 20220612
